FAERS Safety Report 8250515-3 (Version None)
Quarter: 2012Q2

REPORT INFORMATION
  Report Type: 
  Country: None (occurrence: None)
  Receive Date: 20120402
  Receipt Date: 20120402
  Transmission Date: 20120825
  Serious: Yes (Hospitalization, Disabling)
  Sender: FDA-Public Use
  Company Number: None

PATIENT
  Age: 70 Year
  Sex: Female
  Weight: 77.11 kg

DRUGS (2)
  1. ALENDONDRATE [Concomitant]
     Indication: OSTEOPOROSIS PROPHYLAXIS
     Dosage: 1 PILL
     Route: 048
  2. FOSAMAX [Suspect]
     Indication: OSTEOPOROSIS PROPHYLAXIS
     Dosage: 1 PILL
     Route: 048

REACTIONS (8)
  - HYPOAESTHESIA [None]
  - FALL [None]
  - BURNING SENSATION [None]
  - WALKING AID USER [None]
  - FEMUR FRACTURE [None]
  - GENERAL PHYSICAL HEALTH DETERIORATION [None]
  - ARTHRALGIA [None]
  - THROMBOSIS [None]
